FAERS Safety Report 10672365 (Version 1)
Quarter: 2014Q4

REPORT INFORMATION
  Report Type: Spontaneous
  Country: US (occurrence: US)
  Receive Date: 20141223
  Receipt Date: 20141223
  Transmission Date: 20150529
  Serious: Yes (Hospitalization)
  Sender: FDA-Public Use
  Company Number: US-ASTRAZENECA-2014SE95813

PATIENT
  Age: 387 Day
  Sex: Male

DRUGS (5)
  1. SYNAGIS [Suspect]
     Active Substance: PALIVIZUMAB
     Indication: PREMATURE BABY
     Dosage: SECOND DOSE
     Route: 030
     Dates: start: 20141128
  2. PULMICORT TURBUHALER [Concomitant]
     Active Substance: BUDESONIDE
  3. SYNAGIS [Suspect]
     Active Substance: PALIVIZUMAB
     Indication: PREMATURE BABY
     Dosage: FIRST DOSE
     Route: 030
     Dates: start: 20140322
  4. STERIODS [Concomitant]
     Active Substance: UNSPECIFIED INGREDIENT
  5. ALBUTEROL. [Concomitant]
     Active Substance: ALBUTEROL
     Dosage: AS REQUIRED

REACTIONS (2)
  - Bronchiolitis [Unknown]
  - Respiratory syncytial virus test negative [Unknown]

NARRATIVE: CASE EVENT DATE: 20141201
